FAERS Safety Report 10271078 (Version 1)
Quarter: 2014Q3

REPORT INFORMATION
  Report Type: Report from Study
  Country: AR (occurrence: AR)
  Receive Date: 20140701
  Receipt Date: 20140701
  Transmission Date: 20150326
  Serious: Yes (Death)
  Sender: FDA-Public Use
  Company Number: AR-BRISTOL-MYERS SQUIBB COMPANY-21146519

PATIENT
  Age: 20 Year
  Sex: Male

DRUGS (1)
  1. SPRYCEL [Suspect]
     Active Substance: DASATINIB
     Dosage: DRUG INTERRUPTED ON 19-JUN-2014.COMPS X 60.
     Dates: start: 20130502

REACTIONS (1)
  - Death [Fatal]

NARRATIVE: CASE EVENT DATE: 20140619
